FAERS Safety Report 5164344-0 (Version None)
Quarter: 2006Q4

REPORT INFORMATION
  Report Type: 
  Country: None (occurrence: None)
  Receive Date: 20061127
  Receipt Date: 20061127
  Transmission Date: 20070319
  Serious: Yes (Life-Threatening, Hospitalization, Disabling, Other)
  Sender: FDA-Public Use
  Company Number: None

PATIENT
  Age: 58 Year
  Sex: Female
  Weight: 52.1637 kg

DRUGS (2)
  1. LEVOFLOXACIN [Suspect]
     Indication: BONE GRAFT
     Dates: start: 20050410, end: 20061123
  2. LEVOFLOXACIN [Suspect]
     Indication: SPINAL DISORDER
     Dates: start: 20050410, end: 20061123

REACTIONS (15)
  - ASTHMA [None]
  - BLISTER [None]
  - GASTROINTESTINAL HAEMORRHAGE [None]
  - HEADACHE [None]
  - HERPES ZOSTER [None]
  - LABORATORY TEST ABNORMAL [None]
  - MALAISE [None]
  - MUCOUS STOOLS [None]
  - NECK PAIN [None]
  - NIGHTMARE [None]
  - PRURITUS [None]
  - RASH GENERALISED [None]
  - TENDON PAIN [None]
  - VIRAL INFECTION [None]
  - VOMITING [None]
